FAERS Safety Report 9901230 (Version 1)
Quarter: 2014Q1

REPORT INFORMATION
  Report Type: Spontaneous
  Country: IT (occurrence: IT)
  Receive Date: 20140217
  Receipt Date: 20140217
  Transmission Date: 20141002
  Serious: Yes (Disabling, Other)
  Sender: FDA-Public Use
  Company Number: IT-TEVA-463237ISR

PATIENT
  Age: 72 Year
  Sex: Male

DRUGS (11)
  1. ALLOPURINOL [Suspect]
     Dosage: 150 MILLIGRAM DAILY;
     Route: 065
  2. OMEPRAZOLE [Interacting]
     Dosage: 20 MILLIGRAM DAILY;
     Route: 065
  3. QUETIAPINE [Interacting]
     Indication: PSYCHOTHERAPY
     Dosage: 50 MILLIGRAM DAILY;
     Route: 065
  4. SERTRALINE [Interacting]
     Indication: ANTIDEPRESSANT THERAPY
     Route: 065
  5. RANOLAZINE [Interacting]
     Indication: ANGINA PECTORIS
     Dosage: 100 MILLIGRAM DAILY;
     Route: 065
     Dates: start: 201107
  6. ACETYLSALICYILIC ACID [Interacting]
     Dosage: 100 MILLIGRAM DAILY;
     Route: 065
  7. BISOPROLOL [Interacting]
     Dosage: 2.5 MILLIGRAM DAILY;
     Route: 065
  8. FUROSEMIDE [Interacting]
     Route: 065
  9. ATORVASTATIN [Concomitant]
     Dosage: 40 MILLIGRAM DAILY;
     Route: 065
  10. NITROGLYCERIN [Concomitant]
     Dosage: 10 MILLIGRAM DAILY;
     Route: 062
  11. VALSARTAN [Concomitant]
     Dosage: 20 MILLIGRAM DAILY;
     Route: 065

REACTIONS (2)
  - Rhabdomyolysis [Recovered/Resolved]
  - Drug interaction [Recovered/Resolved]
